FAERS Safety Report 22088244 (Version 1)
Quarter: 2023Q1

REPORT INFORMATION
  Report Type: Spontaneous
  Country: US (occurrence: US)
  Receive Date: 20230313
  Receipt Date: 20230313
  Transmission Date: 20230418
  Serious: No
  Sender: FDA-Public Use
  Company Number: US-AUROBINDO-AUR-APL-2022-018594

PATIENT
  Age: 76 Year
  Sex: Female
  Weight: 79.3 kg

DRUGS (1)
  1. AMOXICILLIN\CLAVULANATE POTASSIUM [Suspect]
     Active Substance: AMOXICILLIN\CLAVULANATE POTASSIUM
     Indication: Bronchitis
     Dosage: UNK, TWO TIMES A DAY
     Route: 065
     Dates: start: 20220502, end: 20220510

REACTIONS (5)
  - Nausea [Recovering/Resolving]
  - Diarrhoea [Recovering/Resolving]
  - Illness [Recovering/Resolving]
  - Urinary tract infection [Recovering/Resolving]
  - Bladder spasm [Recovering/Resolving]

NARRATIVE: CASE EVENT DATE: 20220509
